FAERS Safety Report 21566932 (Version 4)
Quarter: 2024Q4

REPORT INFORMATION
  Report Type: Spontaneous
  Country: CA (occurrence: CA)
  Receive Date: 20221108
  Receipt Date: 20241118
  Transmission Date: 20250114
  Serious: Yes (Other)
  Sender: PFIZER
  Company Number: CA-PFIZER INC-202201273021

PATIENT
  Age: 58 Year
  Sex: Male

DRUGS (2)
  1. ABRILADA [Suspect]
     Active Substance: ADALIMUMAB-AFZB
     Indication: Uveitis
     Dosage: 1 DF WEEK 0 80 MG THEN 40 MG EVERY OTHER WEEK
     Route: 058
     Dates: start: 20220930
  2. SIMPONI [Concomitant]
     Active Substance: GOLIMUMAB
     Dosage: UNK

REACTIONS (3)
  - Joint dislocation [Recovering/Resolving]
  - Confusional state [Unknown]
  - Oral herpes [Recovering/Resolving]

NARRATIVE: CASE EVENT DATE: 20220101
